FAERS Safety Report 15728343 (Version 1)
Quarter: 2018Q4

REPORT INFORMATION
  Report Type: Spontaneous
  Country: FR (occurrence: FR)
  Receive Date: 20181217
  Receipt Date: 20181217
  Transmission Date: 20190205
  Serious: Yes (Hospitalization)
  Sender: FDA-Public Use
  Company Number: FR-REGENERON PHARMACEUTICALS, INC.-2018-48251

PATIENT

DRUGS (1)
  1. EYLEA [Suspect]
     Active Substance: AFLIBERCEPT
     Indication: AGE-RELATED MACULAR DEGENERATION
     Dosage: 2 MG, Q1MON
     Route: 031
     Dates: start: 20180814, end: 20181015

REACTIONS (7)
  - Diarrhoea [Recovered/Resolved]
  - Face oedema [Recovered/Resolved]
  - Ischaemic stroke [Recovered/Resolved with Sequelae]
  - Eye inflammation [Recovered/Resolved]
  - Eosinophilia [Recovered/Resolved]
  - Troponin increased [Recovered/Resolved]
  - Abdominal pain [Recovered/Resolved]

NARRATIVE: CASE EVENT DATE: 201811
